FAERS Safety Report 9268347 (Version 1)
Quarter: 2013Q2

REPORT INFORMATION
  Report Type: Spontaneous
  Country: US (occurrence: US)
  Receive Date: 20130502
  Receipt Date: 20130502
  Transmission Date: 20140414
  Serious: No
  Sender: FDA-Public Use
  Company Number: US-ALEXION-A201202048

PATIENT
  Age: 20 Year
  Sex: Male
  Weight: 72.56 kg

DRUGS (4)
  1. SOLIRIS 300MG [Suspect]
     Indication: PAROXYSMAL NOCTURNAL HAEMOGLOBINURIA
     Dosage: 600 MG, QW
     Route: 042
     Dates: start: 20120216, end: 20120307
  2. SOLIRIS 300MG [Suspect]
     Dosage: 900 MG, Q2W
     Route: 042
     Dates: start: 20120314
  3. PENICILLIN [Concomitant]
     Dosage: UNK
  4. DOXYCYCLINE [Concomitant]
     Indication: ACNE
     Dosage: UNK

REACTIONS (4)
  - Blood lactate dehydrogenase increased [Unknown]
  - Vessel puncture site bruise [Recovered/Resolved]
  - Reticulocyte count increased [Unknown]
  - Haemolysis [Unknown]
